FAERS Safety Report 10260785 (Version 2)
Quarter: 2014Q3

REPORT INFORMATION
  Report Type: Spontaneous
  Country: CA (occurrence: CA)
  Receive Date: 20140626
  Receipt Date: 20140710
  Transmission Date: 20150326
  Serious: Yes (Death, Other)
  Sender: FDA-Public Use
  Company Number: CA-AMGEN-CANSP2014046569

PATIENT
  Age: 95 Year
  Sex: Male

DRUGS (1)
  1. ARANESP [Suspect]
     Active Substance: DARBEPOETIN ALFA
     Indication: PRODUCT USED FOR UNKNOWN INDICATION
     Route: 065

REACTIONS (4)
  - Renal failure [Fatal]
  - Cardiac failure [Fatal]
  - Gallbladder neoplasm [Unknown]
  - Renal neoplasm [Unknown]

NARRATIVE: CASE EVENT DATE: 20140517
